FAERS Safety Report 8935432 (Version 1)
Quarter: 2012Q4

REPORT INFORMATION
  Report Type: Spontaneous
  Country: US (occurrence: None)
  Receive Date: 20121119
  Receipt Date: 20121119
  Transmission Date: 20130627
  Serious: Yes (Other)
  Sender: FDA-Public Use
  Company Number: US-BANPHARM-20120346

PATIENT
  Age: 60 Year
  Sex: Male
  Weight: 73.47 kg

DRUGS (6)
  1. NAPROXEN SODIUM 220 MG [Suspect]
     Dosage: 220 mg,  qd,  Oral
     Route: 048
     Dates: start: 20120720, end: 20121102
  2. DIABETES DRUGS [Concomitant]
  3. DIURETICS [Concomitant]
  4. LIPID MODIFYING AGENTS [Suspect]
  5. ANTIHYPERTENSIVES [Concomitant]
  6. VITAMINS [Concomitant]

REACTIONS (1)
  - Hepatic enzyme increased [None]
